FAERS Safety Report 10016587 (Version 1)
Quarter: 2014Q1

REPORT INFORMATION
  Report Type: Spontaneous
  Country: US (occurrence: US)
  Receive Date: 20140317
  Receipt Date: 20140317
  Transmission Date: 20141002
  Serious: No
  Sender: FDA-Public Use
  Company Number: US-B.I. PHARMACEUTICALS,INC./RIDGEFIELD-2014-BI-10630BP

PATIENT
  Age: 69 Year
  Sex: Male

DRUGS (8)
  1. PRADAXA [Suspect]
     Indication: ATRIAL FIBRILLATION
     Dosage: 300 MG
     Route: 048
     Dates: start: 201304
  2. LIPITOR [Concomitant]
     Route: 048
  3. BETAPACE [Concomitant]
     Route: 048
  4. WELLBUTRIN [Concomitant]
     Route: 048
  5. JANUMET [Concomitant]
     Route: 048
  6. GLYMEPIRIDE [Concomitant]
     Route: 048
  7. RAMIPRIL [Concomitant]
     Route: 048
  8. UROCIT K [Concomitant]
     Indication: NEPHROLITHIASIS
     Route: 048

REACTIONS (5)
  - Local swelling [Not Recovered/Not Resolved]
  - Periarthritis [Not Recovered/Not Resolved]
  - Arthralgia [Not Recovered/Not Resolved]
  - Musculoskeletal pain [Not Recovered/Not Resolved]
  - Pain in extremity [Not Recovered/Not Resolved]
